FAERS Safety Report 13249735 (Version 1)
Quarter: 2017Q1

REPORT INFORMATION
  Report Type: Spontaneous
  Country: US (occurrence: US)
  Receive Date: 20170218
  Receipt Date: 20170218
  Transmission Date: 20170428
  Serious: No
  Sender: FDA-Public Use
  Company Number: US-ALLERGAN-1672918US

PATIENT
  Sex: Female

DRUGS (1)
  1. RESTASIS [Suspect]
     Active Substance: CYCLOSPORINE
     Indication: DRY EYE
     Dosage: UNK
     Route: 047

REACTIONS (5)
  - Eye pruritus [Recovering/Resolving]
  - Inappropriate schedule of drug administration [Unknown]
  - Eye inflammation [Recovering/Resolving]
  - Product use issue [Unknown]
  - Ocular hyperaemia [Recovering/Resolving]
